FAERS Safety Report 10735632 (Version 2)
Quarter: 2015Q3

REPORT INFORMATION
  Report Type: Spontaneous
  Country: CA (occurrence: CA)
  Receive Date: 20150126
  Receipt Date: 20150803
  Transmission Date: 20151125
  Serious: Yes (Hospitalization, Other)
  Sender: FDA-Public Use
  Company Number: CA-ABBVIE-15K-028-1335225-00

PATIENT
  Age: 22 Year
  Sex: Female
  Weight: 79.45 kg

DRUGS (2)
  1. REMICADE [Suspect]
     Active Substance: INFLIXIMAB
     Indication: CROHN^S DISEASE
     Route: 042
     Dates: start: 201308, end: 201312
  2. HUMIRA [Suspect]
     Active Substance: ADALIMUMAB
     Indication: CROHN^S DISEASE
     Route: 058

REACTIONS (5)
  - Feeling abnormal [Unknown]
  - Sepsis [Unknown]
  - Drug ineffective [Unknown]
  - Vascular access complication [Unknown]
  - Medical device complication [Unknown]

NARRATIVE: CASE EVENT DATE: 201401
